FAERS Safety Report 16693639 (Version 1)
Quarter: 2019Q3

REPORT INFORMATION
  Report Type: Spontaneous
  Country: US (occurrence: US)
  Receive Date: 20190812
  Receipt Date: 20190812
  Transmission Date: 20191004
  Serious: No
  Sender: FDA-Public Use
  Company Number: US-IBSA PHARMA-TIR-2019-0068

PATIENT
  Age: 66 Year
  Sex: Female
  Weight: 68.55 kg

DRUGS (1)
  1. TIROSINT [Suspect]
     Active Substance: LEVOTHYROXINE SODIUM
     Indication: AUTOIMMUNE THYROIDITIS
     Dosage: 112MCG DAILY
     Route: 048

REACTIONS (5)
  - Weight decreased [Unknown]
  - Body height decreased [Unknown]
  - Back pain [Unknown]
  - Condition aggravated [Unknown]
  - Bone density abnormal [Unknown]
